FAERS Safety Report 16463015 (Version 4)
Quarter: 2019Q3

REPORT INFORMATION
  Report Type: Spontaneous
  Country: BR (occurrence: BR)
  Receive Date: 20190621
  Receipt Date: 20190807
  Transmission Date: 20191004
  Serious: Yes (Death, Life-Threatening, Hospitalization)
  Sender: FDA-Public Use
  Company Number: BR-ROCHE-2338704

PATIENT
  Age: 70 Year
  Sex: Male
  Weight: 82 kg

DRUGS (6)
  1. GLIBENCLAMIDE [Concomitant]
     Active Substance: GLYBURIDE
     Indication: PRODUCT USED FOR UNKNOWN INDICATION
  2. SINVASTATINA [Concomitant]
     Active Substance: SIMVASTATIN
     Indication: PRODUCT USED FOR UNKNOWN INDICATION
  3. ACTILYSE [Suspect]
     Active Substance: ALTEPLASE
     Indication: ISCHAEMIC STROKE
     Route: 042
     Dates: start: 20190222, end: 20190222
  4. VANCOMICINA [VANCOMYCIN] [Concomitant]
     Active Substance: VANCOMYCIN
     Indication: DIARRHOEA
     Route: 065
     Dates: start: 20190328
  5. INSULINA NPH [Concomitant]
     Active Substance: INSULIN HUMAN
     Indication: DIABETES MELLITUS
  6. GALVUS [Concomitant]
     Active Substance: VILDAGLIPTIN
     Indication: PRODUCT USED FOR UNKNOWN INDICATION

REACTIONS (14)
  - Hypoalbuminaemia [Recovering/Resolving]
  - Malnutrition [Unknown]
  - Ischaemic stroke [Fatal]
  - Pneumonia [Recovered/Resolved]
  - Diarrhoea [Unknown]
  - Diarrhoea [Recovering/Resolving]
  - Blood disorder [Recovering/Resolving]
  - Acute kidney injury [Not Recovered/Not Resolved]
  - Infection [Unknown]
  - Depressed level of consciousness [Unknown]
  - Oliguria [Unknown]
  - Haemorrhagic transformation stroke [Not Recovered/Not Resolved]
  - Pseudomembranous colitis [Recovering/Resolving]
  - Pneumonia [Recovered/Resolved]

NARRATIVE: CASE EVENT DATE: 20190222
